FAERS Safety Report 18542645 (Version 5)
Quarter: 2022Q1

REPORT INFORMATION
  Report Type: Report from Study
  Country: US (occurrence: US)
  Receive Date: 20201124
  Receipt Date: 20220315
  Transmission Date: 20220423
  Serious: Yes (Hospitalization, Other)
  Sender: FDA-Public Use
  Company Number: US-SHIRE-US202006447

PATIENT
  Age: 70 Year
  Sex: Female

DRUGS (2)
  1. HUMAN IMMUNOGLOBULIN G\HYALURONIDASE RECOMBINANT HUMAN [Suspect]
     Active Substance: HUMAN IMMUNOGLOBULIN G\HYALURONIDASE RECOMBINANT HUMAN
     Indication: Primary immunodeficiency syndrome
     Dosage: 30 GRAM
     Route: 065
  2. GAMMAGARD LIQUID [Suspect]
     Active Substance: HUMAN IMMUNOGLOBULIN G
     Indication: Primary immunodeficiency syndrome
     Route: 042

REACTIONS (22)
  - Macular degeneration [Not Recovered/Not Resolved]
  - Hypersensitivity [Unknown]
  - Surgical failure [Unknown]
  - Cataract [Unknown]
  - Weight decreased [Unknown]
  - Abdominal distension [Unknown]
  - Bronchitis [Unknown]
  - Blood immunoglobulin G decreased [Unknown]
  - Osteoporosis [Unknown]
  - Sinusitis [Unknown]
  - Optic nerve disorder [Unknown]
  - Dysphonia [Unknown]
  - Abdominal discomfort [Unknown]
  - Pain [Unknown]
  - Influenza like illness [Unknown]
  - Fatigue [Unknown]
  - Rash [Unknown]
  - Pyrexia [Unknown]
  - Sciatic nerve injury [Unknown]
  - Urinary tract infection [Unknown]
  - Inappropriate schedule of product administration [Unknown]
  - Device infusion issue [Unknown]

NARRATIVE: CASE EVENT DATE: 20200201
